FAERS Safety Report 21128558 (Version 3)
Quarter: 2025Q3

REPORT INFORMATION
  Report Type: Report from Study
  Country: CA (occurrence: CA)
  Receive Date: 20220725
  Receipt Date: 20250827
  Transmission Date: 20251020
  Serious: Yes (Hospitalization)
  Sender: TAKEDA
  Company Number: CA-TAKEDA-2021TUS000900

PATIENT
  Sex: Female

DRUGS (15)
  1. VEDOLIZUMAB [Suspect]
     Active Substance: VEDOLIZUMAB
     Indication: Colitis ulcerative
  2. VEDOLIZUMAB [Suspect]
     Active Substance: VEDOLIZUMAB
  3. VEDOLIZUMAB [Suspect]
     Active Substance: VEDOLIZUMAB
  4. ATORVASTATIN [Concomitant]
     Active Substance: ATORVASTATIN
  5. ISONIAZID [Concomitant]
     Active Substance: ISONIAZID
     Indication: Latent tuberculosis
  6. PREDNISONE [Concomitant]
     Active Substance: PREDNISONE
  7. LIPITOR [Concomitant]
     Active Substance: ATORVASTATIN CALCIUM
  8. PYRIDOXINE [Concomitant]
     Active Substance: PYRIDOXINE
     Indication: Latent tuberculosis
  9. VITAMIN D [Concomitant]
     Active Substance: VITAMIN D NOS
  10. ENALAPRIL [Concomitant]
     Active Substance: ENALAPRIL
  11. ASPIRIN [Concomitant]
     Active Substance: ASPIRIN
  12. AMLODIPINE [Concomitant]
     Active Substance: AMLODIPINE BESYLATE
  13. PANTOPRAZOLE [Concomitant]
     Active Substance: PANTOPRAZOLE
  14. Spiriva Inhalaer [Concomitant]
  15. EBASTINE [Concomitant]
     Active Substance: EBASTINE

REACTIONS (3)
  - Joint dislocation [Unknown]
  - Bursitis [Unknown]
  - Implant site pain [Unknown]
